FAERS Safety Report 5946180-8 (Version None)
Quarter: 2008Q4

REPORT INFORMATION
  Report Type: 
  Country: None (occurrence: None)
  Receive Date: 20081106
  Receipt Date: 20081106
  Transmission Date: 20090506
  Serious: Yes (Other)
  Sender: FDA-Public Use
  Company Number: None

PATIENT
  Age: 48 Year
  Sex: Female
  Weight: 58.9676 kg

DRUGS (4)
  1. CYMBALTA [Suspect]
     Indication: ANXIETY
     Dosage: 60 MG ONCE DAILY PO; 30 MG ONCE DAILY PO
     Route: 048
     Dates: start: 20080601, end: 20081010
  2. CYMBALTA [Suspect]
     Indication: DEPRESSION
     Dosage: 60 MG ONCE DAILY PO; 30 MG ONCE DAILY PO
     Route: 048
     Dates: start: 20080601, end: 20081010
  3. CYMBALTA [Suspect]
     Indication: ANXIETY
     Dosage: 60 MG ONCE DAILY PO; 30 MG ONCE DAILY PO
     Route: 048
     Dates: start: 20081010, end: 20081030
  4. CYMBALTA [Suspect]
     Indication: DEPRESSION
     Dosage: 60 MG ONCE DAILY PO; 30 MG ONCE DAILY PO
     Route: 048
     Dates: start: 20081010, end: 20081030

REACTIONS (19)
  - ACTIVITIES OF DAILY LIVING IMPAIRED [None]
  - AMNESIA [None]
  - ARTHRALGIA [None]
  - CHILLS [None]
  - DISORIENTATION [None]
  - DRUG INTERACTION [None]
  - DRUG WITHDRAWAL SYNDROME [None]
  - FEAR [None]
  - FORMICATION [None]
  - HEART RATE INCREASED [None]
  - HOT FLUSH [None]
  - HYPERTENSION [None]
  - MEMORY IMPAIRMENT [None]
  - MUSCLE SPASMS [None]
  - MYALGIA [None]
  - NAUSEA [None]
  - PARAESTHESIA [None]
  - SPEECH DISORDER [None]
  - TREMOR [None]
